FAERS Safety Report 15900941 (Version 1)
Quarter: 2019Q1

REPORT INFORMATION
  Report Type: Report from Study
  Country: CA (occurrence: CA)
  Receive Date: 20190201
  Receipt Date: 20190201
  Transmission Date: 20190417
  Serious: Yes (Death)
  Sender: FDA-Public Use
  Company Number: CA-TAIHO ONCOLOGY  INC-EU-2019-00302

PATIENT
  Sex: Female
  Weight: 94.3 kg

DRUGS (1)
  1. LONSURF [Suspect]
     Active Substance: TIPIRACIL HYDROCHLORIDE\TRIFLURIDINE
     Indication: COLORECTAL CANCER METASTATIC
     Dosage: CYCLE 1 ENDED 05/MAR/2018, ?CYCLE 2: 06/MAR/2018-02/APR/2018,? CYCLE 3:  03/APR/2018-30/APR/2018, ?C
     Route: 048
     Dates: start: 20180206

REACTIONS (2)
  - Death [Fatal]
  - Neutrophil count decreased [None]

NARRATIVE: CASE EVENT DATE: 2018
